FAERS Safety Report 15553283 (Version 2)
Quarter: 2019Q1

REPORT INFORMATION
  Report Type: Report from Study
  Country: None (occurrence: BR)
  Receive Date: 20181026
  Receipt Date: 20190130
  Transmission Date: 20190417
  Serious: Yes (Hospitalization, Other)
  Sender: FDA-Public Use
  Company Number: BR-ABBVIE-18K-020-2527157-00

PATIENT
  Age: 34 Year
  Sex: Female
  Weight: 60 kg

DRUGS (5)
  1. HUMIRA [Suspect]
     Active Substance: ADALIMUMAB
     Indication: COLITIS ULCERATIVE
     Dosage: WEEK 0
     Route: 058
     Dates: start: 20171116, end: 20171116
  2. HUMIRA [Suspect]
     Active Substance: ADALIMUMAB
     Route: 058
     Dates: end: 20180929
  3. PROGRAF [Concomitant]
     Active Substance: TACROLIMUS\TACROLIMUS ANHYDROUS
     Indication: LIVER TRANSPLANT
     Dates: start: 2010
  4. MESALAZINE [Concomitant]
     Active Substance: MESALAMINE
     Indication: LIVER TRANSPLANT
     Dosage: DISSOLVED BY THE PROBE
     Dates: start: 2010
  5. AZATHIOPRINE. [Concomitant]
     Active Substance: AZATHIOPRINE
     Indication: LIVER TRANSPLANT
     Dates: start: 2010

REACTIONS (14)
  - Renal disorder [Recovered/Resolved]
  - Malaise [Unknown]
  - Dyspnoea [Unknown]
  - Seizure [Unknown]
  - Pulmonary thrombosis [Recovered/Resolved]
  - Apparent death [Unknown]
  - Anxiety [Unknown]
  - Drug hypersensitivity [Unknown]
  - Limb discomfort [Unknown]
  - Infection [Unknown]
  - Bacterial infection [Not Recovered/Not Resolved]
  - Brain oedema [Unknown]
  - Headache [Unknown]
  - Brain neoplasm [Recovered/Resolved]

NARRATIVE: CASE EVENT DATE: 201810
